FAERS Safety Report 22804144 (Version 2)
Quarter: 2024Q2

REPORT INFORMATION
  Report Type: Spontaneous
  Country: CN (occurrence: CN)
  Receive Date: 20230809
  Receipt Date: 20240508
  Transmission Date: 20240716
  Serious: Yes (Hospitalization, Other)
  Sender: FDA-Public Use
  Company Number: CN-ORGANON-O2308CHN000439

PATIENT
  Age: 27 Year
  Sex: Female
  Weight: 50.2 kg

DRUGS (9)
  1. FOLLITROPIN BETA [Suspect]
     Active Substance: FOLLITROPIN BETA
     Indication: Ovulation induction
     Dosage: 120 IU, QD
     Route: 058
     Dates: start: 20230702, end: 20230706
  2. FOLLITROPIN BETA [Suspect]
     Active Substance: FOLLITROPIN BETA
     Dosage: 125 IU, QD
     Dates: start: 20230707, end: 20230710
  3. MENOTROPINS [Suspect]
     Active Substance: MENOTROPINS
     Indication: Ovulation induction
     Dosage: 75 IU, QD
     Route: 030
     Dates: start: 20230707, end: 20230711
  4. CHORIONIC GONADOTROPHIN [Suspect]
     Active Substance: CHORIOGONADOTROPIN ALFA
     Indication: Ovulation induction
     Dosage: 6000 IU, QD
     Route: 030
     Dates: start: 20230712, end: 20230712
  5. FOLLITROPIN ALFA [Suspect]
     Active Substance: FOLLITROPIN ALFA
     Indication: Ovulation induction
     Dosage: 75 INTERNATIONAL UNIT, QD
     Route: 058
     Dates: start: 20230711, end: 20230711
  6. LUTROPIN ALFA [Suspect]
     Active Substance: LUTROPIN ALFA
     Indication: Ovulation induction
     Dosage: 75 IU, QD
     Route: 058
     Dates: start: 20230711, end: 20230711
  7. SODIUM CHLORIDE [Concomitant]
     Active Substance: SODIUM CHLORIDE
     Dosage: 2 ML, QD
     Route: 030
     Dates: start: 20230707, end: 20230711
  8. SODIUM CHLORIDE [Concomitant]
     Active Substance: SODIUM CHLORIDE
     Dosage: 2 ML, QD
     Dates: start: 20230712, end: 20230712
  9. STERILE WATER FOR INJECTION [Concomitant]
     Active Substance: WATER
     Dosage: 1 ML, QD
     Route: 058
     Dates: start: 20230711, end: 20230711

REACTIONS (17)
  - Chest discomfort [Recovering/Resolving]
  - Palpitations [Recovering/Resolving]
  - Aspartate aminotransferase increased [Recovering/Resolving]
  - Alanine aminotransferase increased [Recovering/Resolving]
  - Localised oedema [Recovering/Resolving]
  - Urine output decreased [Recovering/Resolving]
  - Asthenia [Recovering/Resolving]
  - Ascites [Recovering/Resolving]
  - Productive cough [Recovering/Resolving]
  - Vomiting [Recovering/Resolving]
  - Dyspnoea [Recovering/Resolving]
  - Ovarian hyperstimulation syndrome [Recovering/Resolving]
  - Abdominal discomfort [Recovering/Resolving]
  - Abdominal pain [Recovering/Resolving]
  - Abdominal distension [Recovering/Resolving]
  - Nausea [Recovering/Resolving]
  - Abdominal pain upper [Recovering/Resolving]

NARRATIVE: CASE EVENT DATE: 20230714
